FAERS Safety Report 5674888-0 (Version None)
Quarter: 2008Q1

REPORT INFORMATION
  Report Type: 
  Country: None (occurrence: None)
  Receive Date: 20080320
  Receipt Date: 20080305
  Transmission Date: 20080703
  Serious: Yes (Other)
  Sender: FDA-Public Use
  Company Number: AU-PFIZER INC-2008024656

PATIENT
  Sex: Female

DRUGS (6)
  1. CHAMPIX [Suspect]
  2. MOGADON [Concomitant]
  3. RISPERIDONE [Concomitant]
  4. ABILIFY [Concomitant]
  5. EFFEXOR [Concomitant]
  6. DIAZEPAM [Concomitant]

REACTIONS (7)
  - BEDRIDDEN [None]
  - DIZZINESS [None]
  - EMOTIONAL DISTRESS [None]
  - FATIGUE [None]
  - MOOD SWINGS [None]
  - NAUSEA [None]
  - VERTIGO [None]
